FAERS Safety Report 7763512-9 (Version None)
Quarter: 2011Q3

REPORT INFORMATION
  Report Type: 
  Country: None (occurrence: None)
  Receive Date: 20110920
  Receipt Date: 20110915
  Transmission Date: 20111222
  Serious: Yes (Death, Hospitalization, Other)
  Sender: FDA-Public Use
  Company Number: PHHY2011JP82585

PATIENT
  Sex: Female
  Weight: 48 kg

DRUGS (26)
  1. URSO 250 [Concomitant]
     Dosage: 600 MG, UNK
     Route: 048
     Dates: start: 20081216, end: 20110210
  2. TEICOPLANIN [Concomitant]
     Indication: PROPHYLAXIS
     Dosage: 400 MG, UNK
     Dates: start: 20110107, end: 20110203
  3. IMMUNE GLOBULIN (HUMAN) [Concomitant]
     Indication: PROPHYLAXIS
     Dosage: 5 G, UNK
     Dates: start: 20110201
  4. RED BLOOD CELLS, CONCENTRATED [Concomitant]
     Dosage: 2 TO 4 UNITS EVERY 2 TO 3 DAYS
     Dates: start: 20110120, end: 20110215
  5. PLATELETS [Concomitant]
     Dosage: 10 TO 20 UNITS EVERY 1 TO 3 DAYS
     Dates: start: 20110112
  6. IMMUNE GLOBULIN (HUMAN) [Concomitant]
     Dosage: 5 G, UNK
     Dates: end: 20110212
  7. KETALAR [Concomitant]
     Dosage: 50 MG, UNK
     Dates: start: 20110201, end: 20110217
  8. CELECOXIB [Concomitant]
     Dosage: 400 MG, UNK
     Route: 048
     Dates: start: 20100608, end: 20110119
  9. VFEND [Concomitant]
     Indication: PROPHYLAXIS
     Dosage: 300 MG, UNK
     Route: 048
     Dates: start: 20100401, end: 20101222
  10. NEUART [Concomitant]
     Indication: ACUTE MYELOID LEUKAEMIA
     Dosage: 1500 IU, UNK
     Dates: start: 20110213, end: 20110214
  11. PLATELETS [Concomitant]
     Dosage: 10 TO 20 UNITS EVERY WEEK
     Dates: start: 20100922, end: 20110101
  12. RABEPRAZOLE SODIUM [Concomitant]
     Indication: PROPHYLAXIS
     Dosage: 10 MG, UNK
     Route: 048
     Dates: start: 20081219, end: 20110210
  13. FUNGUARD [Concomitant]
     Indication: PROPHYLAXIS
     Dosage: 150 MG, UNK
     Dates: start: 20110130
  14. SOLU-CORTEF [Suspect]
     Indication: ACUTE MYELOID LEUKAEMIA
     Dosage: 400 MG, DAILY
     Dates: start: 20110130
  15. DUROTEP JANSSEN [Concomitant]
     Dosage: 2.1 MG, UNK
     Route: 062
     Dates: start: 20100608, end: 20101018
  16. FENTANYL CITRATE [Concomitant]
     Dosage: 2 MG, UNK
     Route: 062
     Dates: start: 20101020, end: 20110202
  17. EXJADE [Suspect]
     Indication: IRON OVERLOAD
     Dosage: 1000 MG, DAILY
     Route: 048
     Dates: start: 20100922, end: 20110118
  18. MEROPENEM [Concomitant]
     Indication: PROPHYLAXIS
     Dosage: 3 G, UNK
     Dates: start: 20110105, end: 20110123
  19. GARENOXACIN MESYLATE [Concomitant]
     Indication: PROPHYLAXIS
     Dosage: 400 MG, UNK
     Route: 048
     Dates: start: 20090123, end: 20110104
  20. FLUCONAZOLE [Concomitant]
     Indication: PROPHYLAXIS
     Dosage: 200 MG, UNK
     Route: 048
     Dates: start: 20101222, end: 20110110
  21. ZYVOX [Concomitant]
     Indication: PROPHYLAXIS
     Dosage: 1200 MG, UNK
     Dates: start: 20101229, end: 20110106
  22. MYLOTARG [Concomitant]
     Indication: ACUTE MYELOID LEUKAEMIA
     Dosage: 14 MG, UNK
     Dates: start: 20110113
  23. NEUTROGIN [Concomitant]
     Indication: ACUTE MYELOID LEUKAEMIA
     Dosage: 250 UG, UNK
     Dates: start: 20110211
  24. RED BLOOD CELLS, CONCENTRATED [Concomitant]
     Dosage: 2 TO 4 UNITS EVERY WEEK
     Dates: start: 20101102, end: 20110110
  25. OXINORM [Concomitant]
     Dosage: 2.5 MG, UNK
     Route: 048
     Dates: start: 20100608, end: 20110107
  26. RED BLOOD CELLS, CONCENTRATED [Concomitant]
     Dosage: 2 UNITS EVERY WEEK
     Dates: start: 20100922, end: 20101006

REACTIONS (14)
  - PNEUMONIA [None]
  - FASCIITIS [None]
  - ABNORMAL FAECES [None]
  - NEOPLASM PROGRESSION [None]
  - FAECES DISCOLOURED [None]
  - PYREXIA [None]
  - MALLORY-WEISS SYNDROME [None]
  - PERICARDITIS [None]
  - HYPERGLYCAEMIA [None]
  - PLEURAL EFFUSION [None]
  - BLOOD UREA INCREASED [None]
  - NEOPLASM MALIGNANT [None]
  - CARDIAC TAMPONADE [None]
  - COAGULOPATHY [None]
